FAERS Safety Report 6373646-1 (Version None)
Quarter: 2009Q3

REPORT INFORMATION
  Report Type: 
  Country: None (occurrence: None)
  Receive Date: 20090924
  Receipt Date: 20090911
  Transmission Date: 20100115
  Serious: Yes (Hospitalization)
  Sender: FDA-Public Use
  Company Number: FR-PFIZER INC-2009267331

PATIENT
  Age: 74 Year

DRUGS (3)
  1. TAHOR [Suspect]
     Dosage: 80 MG, 1X/DAY
     Route: 048
     Dates: start: 20090511
  2. PLAVIX [Suspect]
     Dosage: 2 DF DAILY
     Route: 048
     Dates: start: 20090511, end: 20090530
  3. NEXIUM [Suspect]
     Indication: RHEUMATOID ARTHRITIS
     Dosage: 20 MG, 1X/DAY
     Route: 048
     Dates: start: 20090511

REACTIONS (2)
  - DRUG INEFFECTIVE [None]
  - THROMBOSIS [None]
